FAERS Safety Report 4738485-3 (Version None)
Quarter: 2005Q3

REPORT INFORMATION
  Report Type: 
  Country: None (occurrence: None)
  Receive Date: 20050809
  Receipt Date: 20050729
  Transmission Date: 20060218
  Serious: Yes (Death, Other)
  Sender: FDA-Public Use
  Company Number: IN-BRISTOL-MYERS SQUIBB COMPANY-13056155

PATIENT
  Sex: Male

DRUGS (5)
  1. PARAPLATIN [Suspect]
     Indication: OESOPHAGEAL CARCINOMA
     Route: 042
     Dates: start: 20050706, end: 20050706
  2. MITOTAX [Suspect]
     Indication: OESOPHAGEAL CARCINOMA
     Route: 042
     Dates: start: 20050706, end: 20050706
  3. ONDANSETRON [Concomitant]
     Indication: PREMEDICATION
     Route: 042
     Dates: start: 20050706
  4. METOCLOPRAMIDE [Concomitant]
     Indication: PREMEDICATION
     Route: 042
     Dates: start: 20050706
  5. DECADRON [Concomitant]
     Indication: PREMEDICATION
     Route: 042
     Dates: start: 20050706

REACTIONS (2)
  - ASTHENIA [None]
  - DEATH [None]
